FAERS Safety Report 25136221 (Version 1)
Quarter: 2025Q1

REPORT INFORMATION
  Report Type: Spontaneous
  Country: CN (occurrence: CN)
  Receive Date: 20250328
  Receipt Date: 20250328
  Transmission Date: 20250409
  Serious: Yes (Other)
  Sender: BAYER HEALTHCARE PHARMACEUTICALS INC.
  Company Number: CN-BAYER-2025A036953

PATIENT
  Sex: Female

DRUGS (1)
  1. GLUCOBAY [Suspect]
     Active Substance: ACARBOSE
     Indication: Diabetes mellitus
     Dosage: 1 DF, TID
     Route: 048
     Dates: start: 2025

REACTIONS (3)
  - Limb operation [None]
  - Fall [None]
  - Blood glucose increased [None]

NARRATIVE: CASE EVENT DATE: 20250101
